FAERS Safety Report 7874966-1 (Version None)
Quarter: 2011Q4

REPORT INFORMATION
  Report Type: 
  Country: None (occurrence: None)
  Receive Date: 20111031
  Receipt Date: 20111024
  Transmission Date: 20120403
  Serious: Yes (Other)
  Sender: FDA-Public Use
  Company Number: FR-JNJFOC-20111012849

PATIENT

DRUGS (23)
  1. DOXORUBICIN HCL [Suspect]
     Route: 042
  2. DOXORUBICIN HCL [Suspect]
     Route: 042
  3. CYCLOPHOSPHAMIDE [Suspect]
     Indication: LYMPHOMA
     Route: 065
  4. BLEOMYCIN SULFATE [Suspect]
     Route: 042
  5. MESNA [Suspect]
     Indication: LYMPHOMA
     Route: 042
  6. ELDISINE [Suspect]
     Indication: LYMPHOMA
     Route: 065
  7. MESNA [Suspect]
     Route: 042
  8. DOXORUBICIN HCL [Suspect]
     Route: 042
  9. BLEOMYCIN SULFATE [Suspect]
     Route: 042
  10. PREDNISONE [Suspect]
     Indication: LYMPHOMA
     Route: 048
  11. DOXORUBICIN HCL [Suspect]
     Indication: LYMPHOMA
     Route: 042
  12. CYCLOPHOSPHAMIDE [Suspect]
     Route: 065
  13. NEUPOGEN [Concomitant]
     Route: 065
  14. MESNA [Suspect]
     Route: 042
  15. MESNA [Suspect]
     Route: 042
  16. ELDISINE [Suspect]
     Route: 065
  17. METHOTREXATE [Suspect]
     Indication: LYMPHOMA
     Route: 037
  18. ELDISINE [Suspect]
     Route: 065
  19. ELDISINE [Suspect]
     Route: 065
  20. BLEOMYCIN SULFATE [Suspect]
     Route: 042
  21. CYCLOPHOSPHAMIDE [Suspect]
     Route: 065
  22. CYCLOPHOSPHAMIDE [Suspect]
     Route: 065
  23. BLEOMYCIN SULFATE [Suspect]
     Indication: LYMPHOMA
     Route: 042

REACTIONS (1)
  - SUBDURAL HAEMATOMA [None]
